FAERS Safety Report 16853549 (Version 1)
Quarter: 2019Q3

REPORT INFORMATION
  Report Type: Spontaneous
  Country: BR (occurrence: BR)
  Receive Date: 20190926
  Receipt Date: 20190926
  Transmission Date: 20191005
  Serious: Yes (Other)
  Sender: FDA-Public Use
  Company Number: BR-AMGEN-BRASP2019156973

PATIENT
  Age: 85 Year
  Sex: Female

DRUGS (1)
  1. ENBREL [Suspect]
     Active Substance: ETANERCEPT
     Indication: PRODUCT USED FOR UNKNOWN INDICATION
     Dosage: UNK
     Route: 065

REACTIONS (7)
  - Rheumatic disorder [Unknown]
  - Cardiac disorder [Unknown]
  - Malaise [Unknown]
  - Pain [Unknown]
  - Arthralgia [Unknown]
  - Drug ineffective [Unknown]
  - Ill-defined disorder [Unknown]
